FAERS Safety Report 6370569-9 (Version None)
Quarter: 2009Q3

REPORT INFORMATION
  Report Type: 
  Country: None (occurrence: None)
  Receive Date: 20090921
  Receipt Date: 20090921
  Transmission Date: 20100115
  Serious: Yes (Hospitalization)
  Sender: FDA-Public Use
  Company Number: None

PATIENT
  Age: 43 Year
  Sex: Male
  Weight: 84 kg

DRUGS (2)
  1. MOTRIN [Suspect]
     Indication: MUSCULOSKELETAL PAIN
     Dosage: 600MG PO Q6H PRN  2 DOSES
     Route: 048
  2. CRACK COCAINE [Suspect]
     Dosage: SMOKED X 1

REACTIONS (4)
  - CHEST DISCOMFORT [None]
  - DRUG ABUSE [None]
  - DRUG HYPERSENSITIVITY [None]
  - RASH [None]
